FAERS Safety Report 22235896 (Version 1)
Quarter: 2023Q2

REPORT INFORMATION
  Report Type: Spontaneous
  Country: US (occurrence: None)
  Receive Date: 20230419
  Receipt Date: 20230419
  Transmission Date: 20230722
  Serious: No
  Sender: FDA-Public Use
  Company Number: None

PATIENT
  Age: 79 Year
  Sex: Male
  Weight: 102.06 kg

DRUGS (23)
  1. ERLEADA [Suspect]
     Active Substance: APALUTAMIDE
     Indication: Prostate cancer
     Dosage: FREQUENCY : DAILY;?
     Route: 048
     Dates: start: 202303
  2. ALLOPURINOL [Concomitant]
  3. AMLODIPINE [Concomitant]
  4. HERBALS\WITHANIA SOMNIFERA ROOT [Concomitant]
     Active Substance: HERBALS\WITHANIA SOMNIFERA ROOT
  5. ASPIRIN [Concomitant]
  6. CURCUMIN [Concomitant]
  7. DOXAZOSIN [Concomitant]
  8. DP PLATINUM [Concomitant]
  9. ELIQUIS [Concomitant]
     Active Substance: APIXABAN
  10. EVTA [Concomitant]
  11. FLOMAX [Concomitant]
     Active Substance: TAMSULOSIN HYDROCHLORIDE
  12. GINKGO BILOBA L-ARGININE [Concomitant]
  13. METFORMIN [Concomitant]
  14. OMEGA Q PLUS [Concomitant]
  15. PROBIOTIC [Concomitant]
  16. PROSTATE PROWDER [Concomitant]
  17. QUERCETIN [Concomitant]
  18. RHOVIOLA [Concomitant]
  19. TOTAL HEALTH FOR PROSTATE [Concomitant]
  20. VITAMIN C [Concomitant]
  21. VITAMIN D3 [Concomitant]
     Active Substance: CHOLECALCIFEROL
  22. VITAMIN E [Concomitant]
  23. ZINC SULFATE [Concomitant]
     Active Substance: ZINC SULFATE

REACTIONS (4)
  - Pulmonary embolism [None]
  - Pulmonary thrombosis [None]
  - Mass [None]
  - Drug interaction [None]
